FAERS Safety Report 10086227 (Version 1)
Quarter: 2014Q2

REPORT INFORMATION
  Report Type: Spontaneous
  Country: GB (occurrence: GB)
  Receive Date: 20140418
  Receipt Date: 20140418
  Transmission Date: 20141212
  Serious: Yes (Other)
  Sender: FDA-Public Use
  Company Number: GB-TEVA-473912ISR

PATIENT
  Age: 86 Year
  Sex: Female
  Weight: 77.11 kg

DRUGS (1)
  1. TRIMETHOPRIM [Suspect]
     Indication: URINARY TRACT INFECTION
     Route: 048
     Dates: start: 20140319

REACTIONS (3)
  - Dizziness [Recovered/Resolved]
  - Memory impairment [Recovered/Resolved]
  - Asthenia [Recovered/Resolved]
